FAERS Safety Report 5031639-0 (Version None)
Quarter: 2006Q2

REPORT INFORMATION
  Report Type: 
  Country: None (occurrence: None)
  Receive Date: 20060621
  Receipt Date: 20060228
  Transmission Date: 20061013
  Serious: Yes (Other)
  Sender: FDA-Public Use
  Company Number: JP-ROCHE-438709

PATIENT
  Age: 37 Year
  Sex: Male

DRUGS (14)
  1. PEGASYS [Suspect]
     Route: 058
     Dates: start: 20051108
  2. SILECE [Concomitant]
     Route: 048
     Dates: start: 20051025, end: 20060405
  3. MYSLEE [Concomitant]
     Route: 048
     Dates: start: 20051025, end: 20060131
  4. DEPAS [Concomitant]
     Dosage: NEW THERAPY INFO ADDED: DOSE: 0.5 MG FREQUENCY: 1/1 DAY START DATE: 06 APRIL 2006 THERAPY ONGOING
     Route: 048
     Dates: start: 20051025, end: 20060405
  5. MUCOSTA [Concomitant]
     Route: 048
     Dates: start: 20051025, end: 20060131
  6. NAUZELIN [Concomitant]
     Route: 048
     Dates: start: 20051025, end: 20060131
  7. RESTAMIN [Concomitant]
     Route: 061
     Dates: start: 20051025, end: 20060131
  8. SELBEX [Concomitant]
     Route: 048
     Dates: start: 20060201
  9. FAMOSTAGINE [Concomitant]
     Route: 048
     Dates: start: 20060201
  10. MECOBALAMIN [Concomitant]
     Route: 048
     Dates: start: 20060201
  11. TRIAZOLAM [Concomitant]
     Dosage: DRUG NAME: ASASION
     Route: 048
     Dates: start: 20060201, end: 20060405
  12. DORAL [Concomitant]
     Route: 048
     Dates: start: 20060406
  13. LENDORMIN [Concomitant]
     Route: 048
     Dates: start: 20060406
  14. ALOSENN [Concomitant]
     Route: 048
     Dates: start: 20060406

REACTIONS (8)
  - ALCOHOL USE [None]
  - AMNESIA [None]
  - CONTUSION [None]
  - FALL [None]
  - LOSS OF CONSCIOUSNESS [None]
  - PAIN [None]
  - SPINAL COMPRESSION FRACTURE [None]
  - WOUND [None]
